APPROVED DRUG PRODUCT: SULFAPYRIDINE
Active Ingredient: SULFAPYRIDINE
Strength: 500MG
Dosage Form/Route: TABLET;ORAL
Application: N000159 | Product #001
Applicant: ELI LILLY AND CO
Approved: Approved Prior to Jan 1, 1982 | RLD: No | RS: No | Type: DISCN